FAERS Safety Report 19036847 (Version 1)
Quarter: 2021Q1

REPORT INFORMATION
  Report Type: Spontaneous
  Country: AU (occurrence: AU)
  Receive Date: 20210321
  Receipt Date: 20210321
  Transmission Date: 20210420
  Serious: Yes (Disabling)
  Sender: FDA-Public Use
  Company Number: None

PATIENT
  Age: 27 Year
  Sex: Female
  Weight: 62.5 kg

DRUGS (7)
  1. ZINC. [Concomitant]
     Active Substance: ZINC
  2. OCREVUS [Suspect]
     Active Substance: OCRELIZUMAB
     Indication: MULTIPLE SCLEROSIS
     Dosage: ?          OTHER FREQUENCY:EVERY 6 MONTHS;?
     Route: 042
     Dates: start: 20190808, end: 20200814
  3. VITAMIN D [Concomitant]
     Active Substance: VITAMIN D NOS
  4. MAGNESIUM [Concomitant]
     Active Substance: MAGNESIUM
  5. MODAFINIL. [Concomitant]
     Active Substance: MODAFINIL
  6. LION^S MANE [Concomitant]
  7. COENZYME Q10 [Concomitant]
     Active Substance: DIETARY SUPPLEMENT\UBIDECARENONE

REACTIONS (17)
  - Multiple sclerosis [None]
  - Disability [None]
  - Narcolepsy [None]
  - Gait disturbance [None]
  - Anxiety [None]
  - Ligament sprain [None]
  - Periorbital swelling [None]
  - Circadian rhythm sleep disorder [None]
  - Mobility decreased [None]
  - Loss of personal independence in daily activities [None]
  - Ligament rupture [None]
  - Muscular weakness [None]
  - Fatigue [None]
  - Depression [None]
  - Psoriasis [None]
  - Sinusitis [None]
  - Ocular hyperaemia [None]

NARRATIVE: CASE EVENT DATE: 20190808
